FAERS Safety Report 7243373-7 (Version None)
Quarter: 2011Q1

REPORT INFORMATION
  Report Type: 
  Country: None (occurrence: None)
  Receive Date: 20110114
  Receipt Date: 20110105
  Transmission Date: 20110831
  Serious: Yes (Hospitalization, Other)
  Sender: FDA-Public Use
  Company Number: AXC-2011-000005

PATIENT
  Age: 32 Year
  Sex: Male

DRUGS (4)
  1. INFLIXIMAB (INFLIXIMAB) INFUSION [Suspect]
     Indication: COLITIS ULCERATIVE
  2. CORTICOSTEROIDS () UNKNOWN [Suspect]
     Indication: COLITIS ULCERATIVE
     Dosage: HIGH DOSE, INTRAVENOUS
     Route: 042
  3. MERCAPTOPURINE [Suspect]
     Indication: COLITIS ULCERATIVE
  4. MESALAMINE [Suspect]
     Indication: COLITIS ULCERATIVE

REACTIONS (7)
  - HEMIPARESIS [None]
  - HAEMATOCHEZIA [None]
  - CEREBRAL THROMBOSIS [None]
  - CONDITION AGGRAVATED [None]
  - MUSCULAR WEAKNESS [None]
  - CEREBRAL INFARCTION [None]
  - NUCLEAR MAGNETIC RESONANCE IMAGING ABNORMAL [None]
